FAERS Safety Report 23833194 (Version 1)
Quarter: 2024Q2

REPORT INFORMATION
  Report Type: Report from Study
  Country: US (occurrence: US)
  Receive Date: 20240508
  Receipt Date: 20240508
  Transmission Date: 20240716
  Serious: Yes (Hospitalization, Other)
  Sender: FDA-Public Use
  Company Number: US-SAREPTA THERAPEUTICS INC.-SRP2024-004599

PATIENT
  Age: 14 Year
  Sex: Male

DRUGS (1)
  1. GOLODIRSEN [Suspect]
     Active Substance: GOLODIRSEN
     Indication: Product used for unknown indication
     Dosage: UNK

REACTIONS (7)
  - Infectious mononucleosis [Unknown]
  - Epilepsy [Unknown]
  - Respiratory arrest [Recovered/Resolved]
  - Decreased appetite [Unknown]
  - Dehydration [Unknown]
  - Hiatus hernia [Unknown]
  - Vomiting [Unknown]

NARRATIVE: CASE EVENT DATE: 20240301
